FAERS Safety Report 9976506 (Version 1)
Quarter: 2014Q1

REPORT INFORMATION
  Report Type: Report from Study
  Country: US (occurrence: US)
  Receive Date: 20140306
  Receipt Date: 20140306
  Transmission Date: 20141002
  Serious: No
  Sender: FDA-Public Use
  Company Number: US-ABBVIE-13P-163-1165575-00

PATIENT
  Age: 42 Year
  Sex: Female

DRUGS (10)
  1. HUMIRA [Suspect]
     Dates: start: 20131024, end: 20131024
  2. HUMIRA [Suspect]
     Dates: start: 201311
  3. CREON [Concomitant]
     Indication: PANCREATITIS
  4. PAROXETINE [Concomitant]
     Indication: DEPRESSION
     Dosage: 40MG DAILY
  5. COLESTIPOL [Concomitant]
     Indication: PANCREATITIS
     Dosage: 1-3 TIMES A DAY AS NEEDED
  6. VITAMIN D [Concomitant]
     Indication: PRODUCT USED FOR UNKNOWN INDICATION
     Dosage: 2000 IU DAILY
  7. PREDNISONE [Concomitant]
     Indication: PRODUCT USED FOR UNKNOWN INDICATION
  8. OMEPRAZOLE [Concomitant]
     Indication: GASTROOESOPHAGEAL REFLUX DISEASE
  9. LEVOTHYROXINE [Concomitant]
     Indication: HYPOTHYROIDISM
     Route: 048
  10. VIT B12 [Concomitant]
     Indication: VITAMIN SUPPLEMENTATION
     Route: 048

REACTIONS (6)
  - Dizziness [Recovering/Resolving]
  - Injection site pain [Not Recovered/Not Resolved]
  - Dehydration [Not Recovered/Not Resolved]
  - Nausea [Recovering/Resolving]
  - Dizziness [Recovering/Resolving]
  - Thirst [Not Recovered/Not Resolved]
